FAERS Safety Report 7650952-1 (Version None)
Quarter: 2011Q3

REPORT INFORMATION
  Report Type: 
  Country: None (occurrence: None)
  Receive Date: 20110802
  Receipt Date: 20110728
  Transmission Date: 20111222
  Serious: Yes (Other)
  Sender: FDA-Public Use
  Company Number: US-ABBOTT-11P-163-0842124-00

PATIENT
  Sex: Male
  Weight: 89.438 kg

DRUGS (4)
  1. HUMIRA [Suspect]
     Dates: start: 20110501
  2. XIFAXAN [Concomitant]
     Indication: CROHN'S DISEASE
  3. HUMIRA [Suspect]
     Indication: CROHN'S DISEASE
     Dates: start: 20060101, end: 20110201
  4. ANTACID [Concomitant]
     Indication: RENAL FAILURE CHRONIC

REACTIONS (2)
  - RENAL FAILURE CHRONIC [None]
  - HYPERTENSION [None]
